FAERS Safety Report 7760723-3 (Version None)
Quarter: 2011Q3

REPORT INFORMATION
  Report Type: 
  Country: None (occurrence: None)
  Receive Date: 20110919
  Receipt Date: 20110911
  Transmission Date: 20111222
  Serious: Yes (Life-Threatening, Hospitalization, Disabling, Other)
  Sender: FDA-Public Use
  Company Number: JP-ASTRAZENECA-2011SE53080

PATIENT
  Age: 27586 Day
  Sex: Male

DRUGS (12)
  1. LASIX [Concomitant]
     Indication: AORTIC STENOSIS
     Route: 048
     Dates: start: 20101214, end: 20110826
  2. PREDNISOLONE [Concomitant]
     Indication: STEROID THERAPY
     Route: 048
     Dates: start: 20101214, end: 20110826
  3. PLACEBO [Suspect]
     Indication: ACUTE CORONARY SYNDROME
     Dosage: ONCE DAILY
     Route: 048
     Dates: start: 20110827, end: 20110827
  4. CARVEDILOL [Concomitant]
     Indication: AORTIC STENOSIS
     Route: 048
     Dates: start: 20101214, end: 20110826
  5. LOSARTAN POTASSIUM [Concomitant]
     Indication: AORTIC STENOSIS
     Route: 048
     Dates: start: 20101214, end: 20110826
  6. OMEPRAZOLE [Concomitant]
     Indication: GASTRITIS PROPHYLAXIS
     Route: 048
     Dates: start: 20101214, end: 20110826
  7. PLAVIX [Suspect]
     Indication: ACUTE CORONARY SYNDROME
     Route: 048
     Dates: start: 20110827, end: 20110827
  8. METHYLCOBAL [Concomitant]
     Indication: HYPOAESTHESIA
     Route: 048
     Dates: start: 20101214, end: 20110826
  9. EPINASTINE HYDROCHLORIDE [Concomitant]
     Indication: ILL-DEFINED DISORDER
     Route: 048
     Dates: start: 20101214, end: 20110826
  10. ASPIRIN [Suspect]
     Indication: ACUTE CORONARY SYNDROME
     Route: 048
     Dates: start: 20110826, end: 20110826
  11. HEPARIN [Suspect]
     Route: 042
     Dates: start: 20110826, end: 20110826
  12. ALENDRONATE SODIUM [Concomitant]
     Indication: OSTEOPOROSIS
     Route: 048
     Dates: start: 20101214, end: 20110821

REACTIONS (2)
  - PULMONARY OEDEMA [None]
  - DYSPNOEA [None]
